FAERS Safety Report 20405602 (Version 2)
Quarter: 2022Q1

REPORT INFORMATION
  Report Type: Report from Study
  Country: DE (occurrence: DE)
  Receive Date: 20220131
  Receipt Date: 20220315
  Transmission Date: 20220423
  Serious: Yes (Death, Other)
  Sender: FDA-Public Use
  Company Number: DE-VALIDUS PHARMACEUTICALS LLC-DE-VDP-2021-014773

PATIENT

DRUGS (41)
  1. MEPERIDINE HYDROCHLORIDE [Suspect]
     Active Substance: MEPERIDINE HYDROCHLORIDE
     Indication: Adverse event
     Dosage: 50 MG, 1X
     Route: 042
     Dates: start: 20210119, end: 20210119
  2. MEPERIDINE HYDROCHLORIDE [Suspect]
     Active Substance: MEPERIDINE HYDROCHLORIDE
     Dosage: 25 MG, 1X
     Route: 042
     Dates: start: 20210120, end: 20210120
  3. PLERIXAFOR [Suspect]
     Active Substance: PLERIXAFOR
     Indication: Product used for unknown indication
     Dosage: UNK
     Route: 065
  4. ENOXAPARIN SODIUM [Suspect]
     Active Substance: ENOXAPARIN SODIUM
     Indication: Prophylaxis
     Dosage: 60 MG, BID
     Route: 058
     Dates: start: 20200807
  5. CYTARABINE [Suspect]
     Active Substance: CYTARABINE
     Indication: Product used for unknown indication
     Dosage: 329.68 MG, BID
     Route: 042
     Dates: start: 20201013, end: 20201016
  6. CARMUSTINE [Suspect]
     Active Substance: CARMUSTINE
     Indication: Product used for unknown indication
     Dosage: 370.89 MG, QD
     Route: 042
     Dates: start: 20201013, end: 20201013
  7. CARMUSTINE [Suspect]
     Active Substance: CARMUSTINE
     Dosage: UNK
     Route: 065
  8. ETOPOSIDE [Suspect]
     Active Substance: ETOPOSIDE
     Indication: Product used for unknown indication
     Dosage: 247.26 MG, BID
     Route: 042
     Dates: start: 20201013, end: 20201016
  9. ETOPOSIDE [Suspect]
     Active Substance: ETOPOSIDE
     Dosage: UNK
     Route: 065
     Dates: start: 20210122
  10. MELPHALAN [Suspect]
     Active Substance: MELPHALAN
     Indication: Product used for unknown indication
     Dosage: 230.78 MG, QD
     Route: 042
     Dates: start: 20200113, end: 20200113
  11. AMPHOTERICIN B [Concomitant]
     Active Substance: AMPHOTERICIN B
     Indication: Prophylaxis
     Dosage: UNK
     Route: 065
  12. CALCIUM [Concomitant]
     Active Substance: CALCIUM
     Indication: Adverse event
     Route: 065
  13. SULFAMETHOXAZOLE\TRIMETHOPRIM [Concomitant]
     Active Substance: SULFAMETHOXAZOLE\TRIMETHOPRIM
     Indication: Prophylaxis
     Dosage: UNK
     Route: 065
     Dates: end: 20210129
  14. DEXAMETHASONE [Concomitant]
     Active Substance: DEXAMETHASONE
     Indication: Adverse event
     Dosage: UNK
     Route: 065
     Dates: start: 20210122, end: 20210126
  15. DIMENHYDRINATE [Concomitant]
     Active Substance: DIMENHYDRINATE
     Indication: Adverse event
     Dosage: UNK
     Route: 065
     Dates: start: 20210119, end: 20210119
  16. ENTECAVIR [Concomitant]
     Active Substance: ENTECAVIR
     Indication: Premedication
     Dosage: UNK
     Route: 065
     Dates: end: 20210129
  17. NOREPINEPHRINE [Concomitant]
     Active Substance: NOREPINEPHRINE
     Indication: Adverse event
     Dosage: UNK
     Route: 065
     Dates: start: 20210122, end: 20210129
  18. ETOPOSIDE [Concomitant]
     Active Substance: ETOPOSIDE
     Indication: Adverse event
     Dosage: UNK
     Route: 065
     Dates: start: 20210122
  19. FIBRINOGEN [Concomitant]
     Active Substance: FIBRINOGEN HUMAN
     Indication: Adverse event
     Dosage: UNK
     Route: 065
  20. FLUCONAZOLE [Concomitant]
     Active Substance: FLUCONAZOLE
     Indication: Prophylaxis
     Dosage: UNK
     Route: 065
     Dates: start: 20201027, end: 20201105
  21. FOLIC ACID [Concomitant]
     Active Substance: FOLIC ACID
     Indication: Prophylaxis
     Dosage: UNK
     Route: 065
  22. INNOHEP [Concomitant]
     Active Substance: TINZAPARIN SODIUM
     Indication: Prophylaxis
     Dosage: UNK
     Route: 065
  23. OXYGEN [Concomitant]
     Active Substance: OXYGEN
     Indication: Adverse event
     Dosage: UNK
     Route: 065
     Dates: start: 20210118
  24. KONAKION [Concomitant]
     Active Substance: PHYTONADIONE
     Indication: Adverse event
     Dosage: UNK
     Route: 065
     Dates: start: 20210118, end: 20210121
  25. LINEZOLID [Concomitant]
     Active Substance: LINEZOLID
     Indication: Product used for unknown indication
     Dosage: UNK
     Route: 065
     Dates: start: 20210128, end: 20210129
  26. MEROPENEM [Concomitant]
     Active Substance: MEROPENEM
     Indication: Adverse event
     Dosage: UNK
     Route: 065
     Dates: start: 20201026, end: 20210129
  27. PANTOPRAZOLE [Concomitant]
     Active Substance: PANTOPRAZOLE
     Indication: Prophylaxis
     Dosage: UNK
     Route: 065
     Dates: end: 20210129
  28. ACETAMINOPHEN [Concomitant]
     Active Substance: ACETAMINOPHEN
     Indication: Adverse event
     Dosage: UNK
     Route: 065
     Dates: start: 20210118
  29. PIPERACILLIN [Concomitant]
     Active Substance: PIPERACILLIN
     Indication: Adverse event
     Dosage: UNK
     Route: 065
     Dates: start: 20201022, end: 20210115
  30. PREDNISOLONE [Concomitant]
     Active Substance: PREDNISOLONE
     Indication: Adverse event
     Dosage: UNK
     Route: 065
     Dates: start: 20210119, end: 20210119
  31. PROTHROMBIN [Concomitant]
     Active Substance: PROTHROMBIN
     Indication: Adverse event
     Route: 065
  32. TRANEXAMIC ACID [Concomitant]
     Active Substance: TRANEXAMIC ACID
     Indication: Adverse event
     Dosage: UNK
     Route: 065
     Dates: start: 20210119
  33. VALACYCLOVIR HYDROCHLORIDE [Concomitant]
     Active Substance: VALACYCLOVIR HYDROCHLORIDE
     Indication: Prophylaxis
     Dosage: UNK
     Route: 065
     Dates: end: 20210129
  34. VANCOMYCIN [Concomitant]
     Active Substance: VANCOMYCIN
     Indication: Adverse event
     Dosage: UNK
     Route: 065
     Dates: start: 20210122
  35. PLATELETS [Concomitant]
     Active Substance: HUMAN PLATELET, ALLOGENIC
     Indication: Adverse event
     Dosage: UNK
     Route: 065
     Dates: start: 20201023, end: 20210129
  36. MCP [Concomitant]
     Active Substance: METOCLOPRAMIDE HYDROCHLORIDE
     Indication: Adverse event
     Dosage: UNK
     Route: 065
  37. FRESH FROZEN PLASMA [Concomitant]
     Active Substance: HUMAN PLASMA
     Indication: Adverse event
     Dosage: UNK
     Route: 065
  38. ATENATIV [Concomitant]
     Active Substance: ANTITHROMBIN III HUMAN
     Indication: Adverse event
     Dosage: UNK
     Route: 065
     Dates: start: 20200901, end: 20200907
  39. TAZOBACTAM [Concomitant]
     Active Substance: TAZOBACTAM
     Indication: Product used for unknown indication
     Dosage: UNK
     Route: 065
     Dates: start: 20201022, end: 20210115
  40. HUMAN RED BLOOD CELL [Concomitant]
     Active Substance: HUMAN RED BLOOD CELL
     Indication: Adverse event
     Dosage: UNK
     Route: 065
  41. MSI [Concomitant]
     Active Substance: MORPHINE SULFATE
     Indication: Adverse event
     Dosage: UNK
     Route: 065
     Dates: start: 20210118

REACTIONS (10)
  - Haemophagocytic lymphohistiocytosis [Fatal]
  - Frequent bowel movements [Fatal]
  - Febrile neutropenia [Unknown]
  - Leukopenia [Not Recovered/Not Resolved]
  - Pyrexia [Unknown]
  - Escherichia infection [Not Recovered/Not Resolved]
  - Body temperature increased [Unknown]
  - Frequent bowel movements [Unknown]
  - Hypotension [Unknown]
  - Hypotension [Unknown]

NARRATIVE: CASE EVENT DATE: 20201022
